FAERS Safety Report 13684296 (Version 1)
Quarter: 2017Q2

REPORT INFORMATION
  Report Type: Spontaneous
  Country: SE (occurrence: SE)
  Receive Date: 20170623
  Receipt Date: 20170623
  Transmission Date: 20170830
  Serious: Yes (Other)
  Sender: FDA-Public Use
  Company Number: SE-TEVA-778627ISR

PATIENT
  Age: 53 Year
  Sex: Female

DRUGS (1)
  1. CLINDAMYCIN ACTAVIS [Suspect]
     Active Substance: CLINDAMYCIN
     Indication: STREPTOCOCCAL INFECTION
     Route: 065
     Dates: end: 20170303

REACTIONS (2)
  - Cholecystitis [Unknown]
  - Pneumothorax [Unknown]

NARRATIVE: CASE EVENT DATE: 201702
